FAERS Safety Report 14303875 (Version 1)
Quarter: 2017Q4

REPORT INFORMATION
  Report Type: Spontaneous
  Country: DK (occurrence: DK)
  Receive Date: 20171219
  Receipt Date: 20171219
  Transmission Date: 20180321
  Serious: Yes (Other)
  Sender: FDA-Public Use
  Company Number: DK-OTSUKA-EU-2014-10358

PATIENT
  Age: 15 Year
  Sex: Female
  Weight: 54 kg

DRUGS (2)
  1. ABILIFY [Suspect]
     Active Substance: ARIPIPRAZOLE
     Indication: MANIA
     Dosage: DOSIS: 10 MG DAGLIGT.
     Dates: start: 20140709
  2. DELEPSINE [Interacting]
     Active Substance: VALPROATE SODIUM
     Indication: MANIA
     Dosage: DOSIS: 300 MG + 600 MG (900 MG DAGLIGT), STYRKE: 300 MG
     Route: 065
     Dates: start: 20140313

REACTIONS (3)
  - Drug interaction [Recovered/Resolved]
  - Neutropenia [Recovering/Resolving]
  - Leukopenia [Recovering/Resolving]

NARRATIVE: CASE EVENT DATE: 20140714
